FAERS Safety Report 19892973 (Version 1)
Quarter: 2021Q3

REPORT INFORMATION
  Report Type: Spontaneous
  Country: US (occurrence: US)
  Receive Date: 20210928
  Receipt Date: 20210928
  Transmission Date: 20211014
  Serious: No
  Sender: FDA-Public Use
  Company Number: US-SA-2021SA313441

PATIENT
  Age: 55 Year
  Sex: Female

DRUGS (1)
  1. DUPIXENT [Suspect]
     Active Substance: DUPILUMAB
     Indication: ASTHMA
     Dosage: 300 MG, QOW
     Route: 058
     Dates: start: 20210813, end: 202109

REACTIONS (8)
  - Hypersomnia [Unknown]
  - Serum sickness [Unknown]
  - Rash [Unknown]
  - Abdominal pain upper [Unknown]
  - Skin discolouration [Unknown]
  - Headache [Unknown]
  - Asthma [Unknown]
  - Nausea [Unknown]

NARRATIVE: CASE EVENT DATE: 20210817
